FAERS Safety Report 7759457-0 (Version None)
Quarter: 2011Q3

REPORT INFORMATION
  Report Type: 
  Country: None (occurrence: None)
  Receive Date: 20110919
  Receipt Date: 20110915
  Transmission Date: 20111222
  Serious: Yes (Death, Hospitalization)
  Sender: FDA-Public Use
  Company Number: JP-ROCHE-789656

PATIENT
  Sex: Male
  Weight: 70 kg

DRUGS (4)
  1. ACTEMRA [Suspect]
     Indication: RHEUMATOID ARTHRITIS
     Route: 041
     Dates: start: 20110531, end: 20110531
  2. BREDININ [Concomitant]
     Route: 048
     Dates: start: 20110531, end: 20110707
  3. LANSOPRAZOLE [Concomitant]
     Route: 048
     Dates: start: 20070823, end: 20110707
  4. ONEALFA [Concomitant]
     Route: 048
     Dates: start: 20090303, end: 20110707

REACTIONS (1)
  - INTERSTITIAL LUNG DISEASE [None]
